FAERS Safety Report 4936555-8 (Version None)
Quarter: 2006Q1

REPORT INFORMATION
  Report Type: 
  Country: None (occurrence: None)
  Receive Date: 20060307
  Receipt Date: 20050315
  Transmission Date: 20060701
  Serious: Yes (Hospitalization, Disabling)
  Sender: FDA-Public Use
  Company Number: US-MERCK-0503USA03104

PATIENT
  Age: 77 Year
  Sex: Female
  Weight: 73 kg

DRUGS (1)
  1. VIOXX [Suspect]
     Indication: ARTERIOSCLEROSIS
     Route: 048
     Dates: start: 20000119, end: 20040501

REACTIONS (15)
  - CARDIAC FAILURE [None]
  - CEREBROVASCULAR ACCIDENT [None]
  - GASTRIC DISORDER [None]
  - HEPATOCELLULAR DAMAGE [None]
  - HYPERTENSION [None]
  - HYSTERECTOMY [None]
  - MYOCARDIAL INFARCTION [None]
  - OOPHORECTOMY [None]
  - OVARIAN DISORDER [None]
  - OVERDOSE [None]
  - POLYTRAUMATISM [None]
  - RENAL DISORDER [None]
  - THROMBOSIS [None]
  - ULCER [None]
  - UTERINE DISORDER [None]
